FAERS Safety Report 10112243 (Version 1)
Quarter: 2014Q2

REPORT INFORMATION
  Report Type: Spontaneous
  Country: US (occurrence: US)
  Receive Date: 20140425
  Receipt Date: 20140425
  Transmission Date: 20141212
  Serious: No
  Sender: FDA-Public Use
  Company Number: US-ASTRAZENECA-2014SE09892

PATIENT
  Age: 79 Year
  Sex: Female

DRUGS (5)
  1. PRILOSEC OTC [Suspect]
     Indication: DYSPEPSIA
     Route: 048
     Dates: start: 20140131, end: 20140210
  2. DRUG USED IN DIABETES [Concomitant]
     Dosage: UNKNOWN
  3. PRAVASTATIN [Concomitant]
     Dosage: UNKNOWN
  4. AMBIEN [Concomitant]
     Dosage: UNKNOWN
  5. CITALOPRAM [Concomitant]
     Dosage: UNKNOWN

REACTIONS (3)
  - Condition aggravated [Recovered/Resolved]
  - Dyspepsia [Recovered/Resolved]
  - Drug ineffective [Unknown]
